FAERS Safety Report 14205249 (Version 7)
Quarter: 2019Q1

REPORT INFORMATION
  Report Type: Spontaneous
  Country: US (occurrence: US)
  Receive Date: 20171120
  Receipt Date: 20190128
  Transmission Date: 20190417
  Serious: Yes (Hospitalization, Other)
  Sender: FDA-Public Use
  Company Number: US-DSJP-DSU-2017-151121

PATIENT

DRUGS (5)
  1. BENICAR [Suspect]
     Active Substance: OLMESARTAN MEDOXOMIL
     Dosage: 20 MG, QD
     Route: 048
     Dates: start: 20160926
  2. BENICAR [Suspect]
     Active Substance: OLMESARTAN MEDOXOMIL
     Dosage: 5 MG, UNK
  3. BENICAR HCT [Suspect]
     Active Substance: HYDROCHLOROTHIAZIDE\OLMESARTAN MEDOXOMIL
     Indication: PRODUCT USED FOR UNKNOWN INDICATION
     Dosage: 40/25 MG, QD
     Route: 048
     Dates: start: 20061203, end: 20170811
  4. BENICAR [Suspect]
     Active Substance: OLMESARTAN MEDOXOMIL
     Indication: PRODUCT USED FOR UNKNOWN INDICATION
     Dosage: 40 MG, QD
     Route: 048
     Dates: start: 20061203, end: 20160926
  5. BENICAR [Suspect]
     Active Substance: OLMESARTAN MEDOXOMIL
     Dosage: 40 MG, QD
     Dates: start: 201610, end: 20170811

REACTIONS (10)
  - Haemorrhoids [Unknown]
  - Constipation [Unknown]
  - Sprue-like enteropathy [Recovering/Resolving]
  - Large intestine polyp [Unknown]
  - Diverticulum intestinal [Unknown]
  - Gastrooesophageal reflux disease [Not Recovered/Not Resolved]
  - Cough [Unknown]
  - Cholecystitis [Recovered/Resolved]
  - Hiatus hernia [Unknown]
  - Helicobacter gastritis [Unknown]

NARRATIVE: CASE EVENT DATE: 20061207
